FAERS Safety Report 10582499 (Version 2)
Quarter: 2014Q4

REPORT INFORMATION
  Report Type: Spontaneous
  Country: JP (occurrence: JP)
  Receive Date: 20141113
  Receipt Date: 20141124
  Transmission Date: 20150529
  Serious: No
  Sender: FDA-Public Use
  Company Number: JP-TAKEDA-2014JNJ005792

PATIENT

DRUGS (2)
  1. VELCADE [Suspect]
     Active Substance: BORTEZOMIB
     Indication: PLASMA CELL MYELOMA
     Route: 065
  2. OXINORM                            /00045603/ [Concomitant]
     Route: 048

REACTIONS (2)
  - Emotional distress [Unknown]
  - Pain [Unknown]
